FAERS Safety Report 14083785 (Version 1)
Quarter: 2017Q4

REPORT INFORMATION
  Report Type: Report from Study
  Country: JP (occurrence: JP)
  Receive Date: 20171013
  Receipt Date: 20171013
  Transmission Date: 20180321
  Serious: Yes (Other)
  Sender: FDA-Public Use
  Company Number: JP-UCBSA-2017039974

PATIENT
  Age: 69 Year
  Sex: Female
  Weight: 36 kg

DRUGS (4)
  1. LEVETIRACETAM. [Suspect]
     Active Substance: LEVETIRACETAM
     Indication: OFF LABEL USE
  2. E KEPPRA [Suspect]
     Active Substance: LEVETIRACETAM
     Indication: CONVULSION PROPHYLAXIS
     Dosage: 500 MG, 2X/DAY (BID)
     Route: 048
     Dates: start: 20160531
  3. E KEPPRA [Suspect]
     Active Substance: LEVETIRACETAM
     Indication: OFF LABEL USE
  4. LEVETIRACETAM. [Suspect]
     Active Substance: LEVETIRACETAM
     Indication: CONVULSION PROPHYLAXIS
     Dosage: 500 MG, 2X/DAY (BID)
     Route: 042
     Dates: start: 20160530, end: 20160530

REACTIONS (2)
  - Partial seizures [Unknown]
  - Off label use [Unknown]

NARRATIVE: CASE EVENT DATE: 20160530
